FAERS Safety Report 16577445 (Version 2)
Quarter: 2019Q3

REPORT INFORMATION
  Report Type: Spontaneous
  Country: JP (occurrence: JP)
  Receive Date: 20190716
  Receipt Date: 20190802
  Transmission Date: 20191004
  Serious: Yes (Death, Other)
  Sender: FDA-Public Use
  Company Number: JP-ASTELLAS-2019JP014644

PATIENT
  Age: 9 Decade
  Sex: Male

DRUGS (2)
  1. FUNGUARD [Suspect]
     Active Substance: MICAFUNGIN SODIUM
     Indication: ASPERGILLUS INFECTION
     Dosage: 300 MG/DAY, UNKNOWN FREQ.
     Route: 041
     Dates: start: 20190702, end: 20190709
  2. SPIRIVA [Concomitant]
     Active Substance: TIOTROPIUM BROMIDE MONOHYDRATE
     Indication: PRODUCT USED FOR UNKNOWN INDICATION
     Dosage: UNK UNK, UNKNOWN FREQ.
     Route: 050
     Dates: end: 20190709

REACTIONS (1)
  - Aspergillus infection [Fatal]

NARRATIVE: CASE EVENT DATE: 20190702
